FAERS Safety Report 19058767 (Version 2)
Quarter: 2021Q1

REPORT INFORMATION
  Report Type: Report from Study
  Country: DE (occurrence: DE)
  Receive Date: 20210325
  Receipt Date: 20210329
  Transmission Date: 20210420
  Serious: Yes (Death, Hospitalization)
  Sender: FDA-Public Use
  Company Number: DE-SA-2021SA042008

PATIENT
  Age: 75 Year
  Sex: Male
  Weight: 98.5 kg

DRUGS (3)
  1. CALCIUM LEVOFOLINATE [Suspect]
     Active Substance: LEVOLEUCOVORIN CALCIUM
     Indication: COLORECTAL CANCER METASTATIC
     Dosage: 136 MG, QOW
     Route: 042
     Dates: start: 20210118, end: 20210118
  2. OXALIPLATIN. [Suspect]
     Active Substance: OXALIPLATIN
     Indication: COLORECTAL CANCER METASTATIC
     Dosage: 136 MG, QOW
     Route: 042
     Dates: start: 20210118, end: 20210118
  3. 5?FU [Suspect]
     Active Substance: FLUOROURACIL
     Indication: COLORECTAL CANCER METASTATIC
     Dosage: 136 MG, QOW
     Route: 042
     Dates: start: 20210118, end: 20210118

REACTIONS (2)
  - Dehydration [Not Recovered/Not Resolved]
  - Cerebellar infarction [Fatal]

NARRATIVE: CASE EVENT DATE: 20210201
